FAERS Safety Report 11248461 (Version 1)
Quarter: 2015Q3

REPORT INFORMATION
  Report Type: Spontaneous
  Country: US (occurrence: US)
  Receive Date: 20150708
  Receipt Date: 20150708
  Transmission Date: 20151125
  Serious: No
  Sender: FDA-Public Use
  Company Number: US-ELI_LILLY_AND_COMPANY-US200910001618

PATIENT
  Age: 40 Year
  Sex: Female

DRUGS (2)
  1. PROZAC [Suspect]
     Active Substance: FLUOXETINE HYDROCHLORIDE
     Dosage: 20 MG, EACH MORNING
     Route: 065
  2. PROZAC [Suspect]
     Active Substance: FLUOXETINE HYDROCHLORIDE
     Indication: DEPRESSION
     Dosage: 10 MG, EACH MORNING
     Route: 065
     Dates: start: 200909

REACTIONS (8)
  - Feeling jittery [Unknown]
  - Heart rate increased [Unknown]
  - Tremor [Unknown]
  - Agitation [Unknown]
  - Irritability [Unknown]
  - Headache [Unknown]
  - Thirst [Unknown]
  - Tinnitus [Unknown]

NARRATIVE: CASE EVENT DATE: 200909
